FAERS Safety Report 9320081 (Version 2)
Quarter: 2013Q2

REPORT INFORMATION
  Report Type: Spontaneous
  Country: CA (occurrence: CA)
  Receive Date: 20130530
  Receipt Date: 20130611
  Transmission Date: 20140414
  Serious: Yes (Death, Hospitalization)
  Sender: FDA-Public Use
  Company Number: CA-ALEXION-A201200349

PATIENT
  Age: 64 Year
  Sex: Female

DRUGS (5)
  1. SOLIRIS 300MG [Suspect]
     Indication: PAROXYSMAL NOCTURNAL HAEMOGLOBINURIA
     Dosage: 600 MG, QW
     Route: 042
     Dates: start: 20111121, end: 20111212
  2. SOLIRIS 300MG [Suspect]
     Dosage: 900 MG, Q2W
     Route: 042
     Dates: start: 20111220, end: 20120227
  3. IRON [Concomitant]
     Dosage: UNK, QD
  4. NEXIUM [Concomitant]
     Dosage: UNK, QD
  5. TYLENOL [Concomitant]
     Dosage: UNK, PRN

REACTIONS (3)
  - Death [Fatal]
  - Hepatic neoplasm [Not Recovered/Not Resolved]
  - Malaise [Unknown]
